FAERS Safety Report 20768733 (Version 1)
Quarter: 2022Q2

REPORT INFORMATION
  Report Type: Spontaneous
  Country: PL (occurrence: PL)
  Receive Date: 20220429
  Receipt Date: 20220429
  Transmission Date: 20220721
  Serious: Yes (Hospitalization, Other)
  Sender: FDA-Public Use
  Company Number: PL-CELGENE-POL-20220206842

PATIENT
  Age: 71 Year
  Sex: Male

DRUGS (31)
  1. AZACITIDINE [Suspect]
     Active Substance: AZACITIDINE
     Indication: Acute myeloid leukaemia
     Dosage: 75 MILLIGRAM/SQ. METER
     Route: 058
     Dates: start: 20210726
  2. AZACITIDINE [Suspect]
     Active Substance: AZACITIDINE
     Route: 058
     Dates: start: 20220215
  3. VENETOCLAX [Suspect]
     Active Substance: VENETOCLAX
     Indication: Acute myeloid leukaemia
     Dosage: 100 MILLIGRAM
     Route: 048
     Dates: start: 20210726, end: 20210726
  4. VENETOCLAX [Suspect]
     Active Substance: VENETOCLAX
     Dosage: 200 MILLIGRAM
     Route: 048
     Dates: start: 20210727, end: 20210727
  5. VENETOCLAX [Suspect]
     Active Substance: VENETOCLAX
     Dosage: 400 MILLIGRAM
     Route: 048
     Dates: start: 20210728
  6. VENETOCLAX [Suspect]
     Active Substance: VENETOCLAX
     Dosage: 100 MILLIGRAM
     Route: 048
     Dates: start: 20210813
  7. VENETOCLAX [Suspect]
     Active Substance: VENETOCLAX
     Dosage: 400 MILLIGRAM
     Route: 048
     Dates: start: 20210908
  8. VENETOCLAX [Suspect]
     Active Substance: VENETOCLAX
     Dosage: 100 MILLIGRAM
     Route: 048
     Dates: start: 20211018
  9. VENETOCLAX [Suspect]
     Active Substance: VENETOCLAX
     Dosage: 400 MILLIGRAM
     Route: 048
     Dates: start: 20211027
  10. PEVONEDISTAT [Suspect]
     Active Substance: PEVONEDISTAT
     Indication: Acute myeloid leukaemia
     Dosage: FREQUENCY TEXT: NOT PROVIDED
     Route: 042
     Dates: start: 20210726
  11. PEVONEDISTAT [Suspect]
     Active Substance: PEVONEDISTAT
     Route: 042
     Dates: start: 20220211
  12. ENOXAPARIN SODIUM [Concomitant]
     Active Substance: ENOXAPARIN SODIUM
     Indication: Prophylaxis
     Route: 065
     Dates: start: 20210826
  13. ENOXAPARIN SODIUM [Concomitant]
     Active Substance: ENOXAPARIN SODIUM
     Dosage: FREQUENCY TEXT: NOT PROVIDED
     Route: 065
     Dates: start: 20210806
  14. ZOPICLONE [Concomitant]
     Active Substance: ZOPICLONE
     Indication: Insomnia
     Dosage: FREQUENCY TEXT: NOT PROVIDED
     Route: 065
     Dates: start: 20210906
  15. FIDAXOMICIN [Concomitant]
     Active Substance: FIDAXOMICIN
     Indication: Product used for unknown indication
     Dosage: FREQUENCY TEXT: NOT PROVIDED
     Route: 065
     Dates: start: 20211207, end: 20211212
  16. EUTHYROX [Concomitant]
     Active Substance: LEVOTHYROXINE SODIUM
     Indication: Hypothyroidism
     Dosage: FREQUENCY TEXT: NOT PROVIDED
     Route: 065
     Dates: start: 20211207
  17. DIETARY SUPPLEMENT [Concomitant]
     Active Substance: DIETARY SUPPLEMENT
     Indication: Hypoalbuminaemia
     Dosage: FREQUENCY TEXT: NOT PROVIDED
     Route: 065
     Dates: start: 20211207, end: 20211211
  18. ENOXAPARIN SODIUM [Concomitant]
     Active Substance: ENOXAPARIN SODIUM
     Indication: Product used for unknown indication
     Dosage: FREQUENCY TEXT: NOT PROVIDED
     Route: 065
     Dates: start: 20211207, end: 20211217
  19. ONDANSETRON [Concomitant]
     Active Substance: ONDANSETRON
     Indication: Prophylaxis of nausea and vomiting
     Dosage: FREQUENCY TEXT: NOT PROVIDED
     Route: 065
     Dates: start: 20211213, end: 20211217
  20. NASEN [Concomitant]
     Indication: Insomnia
     Dosage: FREQUENCY TEXT: NOT PROVIDED
     Route: 065
     Dates: start: 20211214, end: 20211217
  21. OCTENIDINE [Concomitant]
     Active Substance: OCTENIDINE
     Indication: Product used for unknown indication
     Route: 065
     Dates: start: 20211214, end: 20211217
  22. FLUCONAZOLE [Concomitant]
     Active Substance: FLUCONAZOLE
     Indication: Antifungal prophylaxis
     Dosage: FREQUENCY TEXT: NOT PROVIDED
     Route: 065
     Dates: start: 20210719
  23. ALLOPURINOL [Concomitant]
     Active Substance: ALLOPURINOL
     Indication: Product used for unknown indication
     Dosage: FREQUENCY TEXT: NOT PROVIDED
     Route: 065
     Dates: start: 20210805
  24. TORSEMIDE [Concomitant]
     Active Substance: TORSEMIDE
     Indication: Product used for unknown indication
     Route: 065
     Dates: start: 20210813
  25. ALFACALCIDOL [Concomitant]
     Active Substance: ALFACALCIDOL
     Indication: Supplementation therapy
     Dosage: FREQUENCY TEXT: NOT PROVIDED
     Route: 065
     Dates: start: 20210813
  26. ACYCLOVIR [Concomitant]
     Active Substance: ACYCLOVIR
     Indication: Infection prophylaxis
     Dosage: FREQUENCY TEXT: NOT PROVIDED
     Route: 065
     Dates: start: 20210727
  27. ENTECAVIR [Concomitant]
     Active Substance: ENTECAVIR
     Indication: Antiviral prophylaxis
     Dosage: FREQUENCY TEXT: NOT PROVIDED
     Route: 065
     Dates: start: 20210805
  28. Calperos [Concomitant]
     Indication: Hypocalcaemia
     Dosage: FREQUENCY TEXT: NOT PROVIDED
     Route: 065
     Dates: start: 20211124
  29. LACTOBACILLUS ACIDOPHILUS [Concomitant]
     Active Substance: LACTOBACILLUS ACIDOPHILUS
     Indication: Diarrhoea
     Dosage: FREQUENCY TEXT: NOT PROVIDED
     Route: 065
     Dates: start: 20211110
  30. VANCOMYCIN [Concomitant]
     Active Substance: VANCOMYCIN
     Indication: Diarrhoea
     Dosage: FREQUENCY TEXT: NOT PROVIDED
     Route: 065
     Dates: start: 20211223, end: 20211227
  31. POTASSIUM BICARBONATE\POTASSIUM CITRATE [Concomitant]
     Active Substance: POTASSIUM BICARBONATE\POTASSIUM CITRATE
     Indication: Product used for unknown indication
     Route: 065
     Dates: start: 20211017

REACTIONS (1)
  - Clostridium difficile infection [Recovered/Resolved]

NARRATIVE: CASE EVENT DATE: 20220107
